FAERS Safety Report 7289048-X (Version None)
Quarter: 2011Q1

REPORT INFORMATION
  Report Type: 
  Country: None (occurrence: None)
  Receive Date: 20110211
  Receipt Date: 20110131
  Transmission Date: 20110831
  Serious: Yes (Hospitalization, Other)
  Sender: FDA-Public Use
  Company Number: US-AMGEN-USASP2010012456

PATIENT
  Age: 43 Year
  Sex: Female

DRUGS (19)
  1. IRON                               /00023503/ [Concomitant]
  2. NORVASC [Concomitant]
  3. PROCRIT [Suspect]
     Indication: RENAL FAILURE CHRONIC
     Dosage: 15000 IU, UNK
     Dates: start: 20030801
  4. PEPCID [Concomitant]
  5. TOPROL-XL [Concomitant]
  6. ASPIRIN [Concomitant]
  7. PREDNISONE [Concomitant]
  8. LIPITOR [Concomitant]
  9. ZOVIRAX                            /00587301/ [Concomitant]
  10. ARANESP [Suspect]
     Indication: RENAL FAILURE CHRONIC
     Dosage: 200 A?G, Q2WK
  11. MYFORTIC                           /01275101/ [Concomitant]
  12. FOLIC ACID [Concomitant]
  13. VITAMIN B12                        /00056201/ [Concomitant]
  14. CENTRUM SILVER                     /01292501/ [Concomitant]
  15. NEORAL [Concomitant]
  16. LASIX [Concomitant]
  17. SODIUM BICARBONATE [Concomitant]
  18. CEPHALEXIN [Concomitant]
  19. IMDUR [Concomitant]

REACTIONS (19)
  - MYOCARDIAL INFARCTION [None]
  - RENAL FAILURE ACUTE [None]
  - PNEUMONIA [None]
  - SINUSITIS [None]
  - ESCHERICHIA URINARY TRACT INFECTION [None]
  - CYTOMEGALOVIRUS INFECTION [None]
  - VAGINAL HAEMORRHAGE [None]
  - NEUTROPENIA [None]
  - COMPLICATIONS OF TRANSPLANTED KIDNEY [None]
  - HYPOVOLAEMIA [None]
  - APLASIA PURE RED CELL [None]
  - CARDIAC FAILURE CONGESTIVE [None]
  - URINARY TRACT INFECTION [None]
  - DIARRHOEA [None]
  - BRONCHITIS [None]
  - VITAMIN D DEFICIENCY [None]
  - LEUKOPENIA [None]
  - WEIGHT INCREASED [None]
  - FATIGUE [None]
